FAERS Safety Report 9365065 (Version 2)
Quarter: 2013Q4

REPORT INFORMATION
  Report Type: Spontaneous
  Country: US (occurrence: US)
  Receive Date: 20130624
  Receipt Date: 20131210
  Transmission Date: 20140711
  Serious: Yes (Hospitalization, Other)
  Sender: FDA-Public Use
  Company Number: US-B.I. PHARMACEUTICALS,INC./RIDGEFIELD-2013-BI-17425BP

PATIENT
  Age: 62 Year
  Sex: Male

DRUGS (13)
  1. ATROVENT [Suspect]
     Indication: ASTHMA
     Dosage: 136 MCG
     Route: 055
     Dates: start: 20130130
  2. ATROVENT [Suspect]
     Dosage: 68 MCG
     Route: 055
     Dates: start: 201302
  3. ADVAIR [Concomitant]
     Indication: ASTHMA
     Dosage: 1 PUF
     Route: 055
  4. AMIODARONE [Concomitant]
     Indication: CARDIOVASCULAR DISORDER
     Dosage: 100 MG
     Route: 048
  5. AMLODIPINE [Concomitant]
     Indication: HYPERTENSION
     Dosage: 10 MG
     Route: 048
  6. QUINAPRIL [Concomitant]
     Indication: CARDIOVASCULAR DISORDER
     Dosage: 40 MG
     Route: 048
  7. PRAVASTATIN [Concomitant]
     Indication: BLOOD CHOLESTEROL INCREASED
     Dosage: 40 MG
     Route: 048
  8. GEMFIBROZIL [Concomitant]
     Indication: BLOOD CHOLESTEROL INCREASED
     Dosage: 1200 MG
     Route: 048
  9. DIGOXIN [Concomitant]
     Indication: CARDIOVASCULAR DISORDER
     Dosage: 0.125 MG
     Route: 048
  10. LASIX [Concomitant]
     Indication: FLUID RETENTION
     Dosage: 20 MG
     Route: 048
  11. PANTOPRAZOLE [Concomitant]
     Indication: GASTROOESOPHAGEAL REFLUX DISEASE
     Dosage: 40 MG
     Route: 048
  12. METFORMIN [Concomitant]
     Indication: TYPE 2 DIABETES MELLITUS
     Dosage: 2000 MG
     Route: 048
  13. METOPROLOL [Concomitant]
     Indication: HYPERTENSION
     Dosage: 25 MG
     Route: 048

REACTIONS (4)
  - Arterial occlusive disease [Unknown]
  - Cerebrovascular accident [Recovered/Resolved]
  - Cerebrovascular accident [Recovered/Resolved with Sequelae]
  - Vocal cord disorder [Not Recovered/Not Resolved]
